FAERS Safety Report 9471278 (Version 2)
Quarter: 2013Q3

REPORT INFORMATION
  Report Type: Spontaneous
  Country: US (occurrence: None)
  Receive Date: 20130816
  Receipt Date: 20130904
  Transmission Date: 20140515
  Serious: Yes (Life-Threatening, Other)
  Sender: FDA-Public Use
  Company Number: 2013-002570

PATIENT
  Age: 44 Year
  Sex: Female
  Weight: 97.5 kg

DRUGS (4)
  1. LO LOESTRIN FE [Suspect]
     Indication: MENSTRUATION IRREGULAR
     Dosage: TOOK FIRST DOSE, 1 DF ORAL DAILY
     Route: 048
     Dates: start: 20130804, end: 20130804
  2. LO LOESTRIN FE [Suspect]
     Indication: DYSFUNCTIONAL UTERINE BLEEDING
     Dosage: TOOK FIRST DOSE, 1 DF ORAL DAILY
     Route: 048
     Dates: start: 20130804, end: 20130804
  3. LOESTRIN 24 FE [Suspect]
     Indication: DYSFUNCTIONAL UTERINE BLEEDING
     Route: 048
     Dates: end: 201211
  4. SYNTHROID (LEVOTHYROXINE SODIUM) [Concomitant]

REACTIONS (2)
  - Anaphylactic shock [None]
  - Metrorrhagia [None]
